FAERS Safety Report 9756416 (Version 1)
Quarter: 2013Q4

REPORT INFORMATION
  Report Type: Spontaneous
  Country: US (occurrence: US)
  Receive Date: 20131213
  Receipt Date: 20131213
  Transmission Date: 20140711
  Serious: No
  Sender: FDA-Public Use
  Company Number: US-GLAXOSMITHKLINE-A1040754A

PATIENT
  Age: 62 Year
  Sex: Female

DRUGS (1)
  1. NICODERM CQ CLEAR 21MG [Suspect]
     Indication: SMOKING CESSATION THERAPY
     Dosage: 21MG UNKNOWN
     Route: 062
     Dates: start: 201308

REACTIONS (6)
  - Application site pain [Unknown]
  - Tremor [Unknown]
  - Screaming [Unknown]
  - Dysgeusia [Unknown]
  - Drug ineffective [Unknown]
  - Product quality issue [Unknown]
